FAERS Safety Report 8936520 (Version 1)
Quarter: 2012Q4

REPORT INFORMATION
  Report Type: 
  Country: US (occurrence: US)
  Receive Date: 20121130
  Receipt Date: 20121130
  Transmission Date: 20130627
  Serious: Yes (Hospitalization, Congenital Anomaly, Other)
  Sender: FDA-Public Use
  Company Number: US-PFIZER INC-2012297581

PATIENT
  Age: 8 Week
  Sex: Male

DRUGS (4)
  1. ZOLOFT [Suspect]
     Dosage: 50 mg
     Route: 064
     Dates: start: 20080819
  2. PRENATAL [Concomitant]
     Dosage: 100 mg
     Route: 064
     Dates: start: 20080908
  3. FOLIC ACID [Concomitant]
     Dosage: 1 mg
     Route: 064
     Dates: start: 20080908
  4. CARBAMAZEPINE [Concomitant]
     Dosage: 200 mg
     Route: 064
     Dates: start: 20080902

REACTIONS (10)
  - Maternal exposure timing unspecified [Unknown]
  - Hypoplastic left heart syndrome [Unknown]
  - Right atrial dilatation [Unknown]
  - Tricuspid valve incompetence [Unknown]
  - Pulmonary artery stenosis [Unknown]
  - Atrial septal defect [Unknown]
  - Right ventricular hypertrophy [Unknown]
  - Supraventricular tachycardia [Unknown]
  - Right ventricular dysfunction [Unknown]
  - Failure to thrive [Unknown]
